FAERS Safety Report 20033254 (Version 2)
Quarter: 2021Q4

REPORT INFORMATION
  Report Type: Spontaneous
  Country: CN (occurrence: CN)
  Receive Date: 20211104
  Receipt Date: 20211123
  Transmission Date: 20220303
  Serious: Yes (Hospitalization, Other)
  Sender: FDA-Public Use
  Company Number: CN-009507513-2111CHN000043

PATIENT
  Age: 44 Year
  Sex: Female
  Weight: 44 kg

DRUGS (2)
  1. CILASTATIN SODIUM\IMIPENEM [Suspect]
     Active Substance: CILASTATIN SODIUM\IMIPENEM
     Indication: Peritonitis
     Dosage: 01. G, ONCE DAILY (QD)
     Route: 041
     Dates: start: 20211013, end: 20211013
  2. SODIUM CHLORIDE [Concomitant]
     Active Substance: SODIUM CHLORIDE
     Indication: Medication dilution
     Dosage: 100 ML, QD
     Route: 041
     Dates: start: 20211013, end: 20211013

REACTIONS (5)
  - Disorganised speech [Unknown]
  - Anger [Unknown]
  - Confusional state [Recovering/Resolving]
  - Hallucination [Recovering/Resolving]
  - Product use issue [Unknown]

NARRATIVE: CASE EVENT DATE: 20211013
